FAERS Safety Report 10243479 (Version 1)
Quarter: 2014Q2

REPORT INFORMATION
  Report Type: Spontaneous
  Country: US (occurrence: None)
  Receive Date: 20140616
  Receipt Date: 20140616
  Transmission Date: 20141212
  Serious: Yes (Other)
  Sender: FDA-Public Use
  Company Number: US-001050

PATIENT
  Age: 67 Year
  Sex: Female
  Weight: 44.45 kg

DRUGS (3)
  1. GATTEX [Suspect]
     Indication: SHORT-BOWEL SYNDROME
     Dosage: DF SUBCUTANEOUS
     Route: 058
     Dates: start: 20140313
  2. OPIOIDS [Concomitant]
  3. SOLUTIONS FOR PARENTERAL NUTRITION [Concomitant]

REACTIONS (2)
  - Weight decreased [None]
  - Squamous cell carcinoma [None]
